FAERS Safety Report 10386792 (Version 1)
Quarter: 2014Q1

REPORT INFORMATION
  Report Type: Spontaneous
  Country: US (occurrence: None)
  Receive Date: 20140306
  Receipt Date: 20140306
  Transmission Date: 20141002
  Serious: Yes (Other)
  Sender: FDA-Public Use
  Company Number: 163-21880-13062670

PATIENT
  Age: 66 Year
  Sex: Female

DRUGS (6)
  1. REVLIMID [Suspect]
     Indication: PLASMA CELL MYELOMA
     Route: 048
     Dates: start: 20130426, end: 20130726
  2. CYCLOBENZAPRINE (CYCLOBENZAPRINE) [Concomitant]
  3. HCTZ (HYDROCHLOROTHIAZIDE) [Concomitant]
  4. METOPROLOL [Concomitant]
  5. OMEPRAZOLE [Concomitant]
  6. SIMVASTATIN [Concomitant]

REACTIONS (2)
  - Generalised oedema [None]
  - Weight increased [None]
